FAERS Safety Report 8443366 (Version 6)
Quarter: 2014Q1

REPORT INFORMATION
  Report Type: Spontaneous
  Country: US (occurrence: US)
  Receive Date: 20120306
  Receipt Date: 20140113
  Transmission Date: 20141002
  Serious: Yes (Hospitalization)
  Sender: FDA-Public Use
  Company Number: US-GLAXOSMITHKLINE-A0932427A

PATIENT
  Sex: Female
  Weight: 136.4 kg

DRUGS (5)
  1. AVANDIA [Suspect]
     Indication: DIABETES MELLITUS
     Dosage: 8MG PER DAY
     Route: 048
     Dates: start: 2005, end: 2008
  2. COUMADIN [Concomitant]
  3. FUROSEMIDE [Concomitant]
  4. NAPROSYN [Concomitant]
  5. LISINOPRIL [Concomitant]

REACTIONS (5)
  - Myocardial infarction [Not Recovered/Not Resolved]
  - Sinus arrest [Unknown]
  - Atrial flutter [Unknown]
  - Stent placement [Unknown]
  - Patella fracture [Unknown]
